FAERS Safety Report 18445289 (Version 1)
Quarter: 2020Q4

REPORT INFORMATION
  Report Type: Spontaneous
  Country: US (occurrence: US)
  Receive Date: 20201030
  Receipt Date: 20201030
  Transmission Date: 20210114
  Serious: No
  Sender: FDA-Public Use
  Company Number: US-SUNOVION-2020SUN003033

PATIENT
  Age: 50 Year
  Sex: Female

DRUGS (1)
  1. KYNMOBI [Suspect]
     Active Substance: APOMORPHINE HYDROCHLORIDE
     Dosage: CUTTING IN HALF TO THE 20 MG
     Route: 060

REACTIONS (2)
  - Therapeutic product effect increased [Unknown]
  - Wrong technique in product usage process [Unknown]
